FAERS Safety Report 24641231 (Version 1)
Quarter: 2024Q4

REPORT INFORMATION
  Report Type: Spontaneous
  Country: CH (occurrence: CH)
  Receive Date: 20241120
  Receipt Date: 20241120
  Transmission Date: 20250115
  Serious: Yes (Hospitalization)
  Sender: CHEPLAPHARM
  Company Number: None

PATIENT
  Age: 35 Year
  Sex: Female

DRUGS (5)
  1. OLANZAPINE [Interacting]
     Active Substance: OLANZAPINE
     Dosage: IRREGULAR INTAKE?DAILY DOSE: 5 MILLIGRAM
  2. METHADONE [Interacting]
     Active Substance: METHADONE HYDROCHLORIDE
     Dosage: DAILY DOSE: 40 MILLIGRAM
     Dates: start: 20240709, end: 20240710
  3. METHADONE [Interacting]
     Active Substance: METHADONE HYDROCHLORIDE
     Dosage: DAILY DOSE: 50 MILLIGRAM
     Dates: start: 20240711, end: 20240711
  4. METHADONE [Interacting]
     Active Substance: METHADONE HYDROCHLORIDE
     Dosage: DAILY DOSE: 30 MILLIGRAM
     Dates: end: 20240708
  5. CLORAZEPATE DIPOTASSIUM [Interacting]
     Active Substance: CLORAZEPATE DIPOTASSIUM
     Dosage: IRREGULAR INTAKE?DAILY DOSE: 10 MILLIGRAM

REACTIONS (5)
  - Altered state of consciousness [Recovered/Resolved]
  - Respiratory failure [Recovered/Resolved]
  - Hypotension [Recovered/Resolved]
  - Miosis [Recovered/Resolved]
  - Drug interaction [Recovered/Resolved]

NARRATIVE: CASE EVENT DATE: 20240711
